FAERS Safety Report 8138340-5 (Version None)
Quarter: 2012Q1

REPORT INFORMATION
  Report Type: 
  Country: None (occurrence: None)
  Receive Date: 20120215
  Receipt Date: 20120210
  Transmission Date: 20120608
  Serious: No
  Sender: FDA-Public Use
  Company Number: US-PFIZER INC-2012037127

PATIENT
  Age: 78 Year
  Sex: Female
  Weight: 62.132 kg

DRUGS (11)
  1. GABAPENTIN [Suspect]
     Indication: MYALGIA
  2. NEURONTIN [Concomitant]
     Indication: FIBROMYALGIA
     Dosage: UNK
  3. NEURONTIN [Concomitant]
     Indication: MYALGIA
  4. SPIRIVA [Concomitant]
     Indication: CHRONIC OBSTRUCTIVE PULMONARY DISEASE
     Dosage: UNK
  5. VASOTEC [Concomitant]
     Indication: HYPERTENSION
     Dosage: 20 MG, DAILY
  6. TRAZODONE [Concomitant]
     Indication: DEPRESSION
     Dosage: 50MG IN THE MORNING AND 150MG AT NIGHT
  7. AMITRIPTYLINE [Concomitant]
     Indication: DEPRESSION
     Dosage: 20 MG, DAILY
  8. ATENOLOL [Concomitant]
     Indication: HYPERTENSION
     Dosage: 25 MG, DAILY
  9. NEURONTIN [Concomitant]
     Indication: NEURALGIA
  10. GABAPENTIN [Suspect]
     Indication: FIBROMYALGIA
     Dosage: 600MG DAILY
     Dates: start: 20090101, end: 20090101
  11. GABAPENTIN [Suspect]
     Indication: NEURALGIA
     Dosage: 300 MG, DAILY
     Dates: start: 20110501

REACTIONS (6)
  - GLOSSODYNIA [None]
  - RASH GENERALISED [None]
  - DRY MOUTH [None]
  - DEPRESSION [None]
  - PRURITUS [None]
  - SALIVARY HYPERSECRETION [None]
